FAERS Safety Report 14423904 (Version 8)
Quarter: 2018Q3

REPORT INFORMATION
  Report Type: Spontaneous
  Country: US (occurrence: US)
  Receive Date: 20180123
  Receipt Date: 20180817
  Transmission Date: 20181010
  Serious: Yes (Hospitalization)
  Sender: FDA-Public Use
  Company Number: US-PFIZER INC-2018030579

PATIENT
  Age: 51 Year
  Sex: Female

DRUGS (1)
  1. XELJANZ XR [Suspect]
     Active Substance: TOFACITINIB CITRATE
     Dosage: 11 MG, UNK
     Dates: start: 20171229

REACTIONS (6)
  - Pharyngitis [Unknown]
  - Nasopharyngitis [Recovering/Resolving]
  - Sinusitis [Unknown]
  - Influenza [Unknown]
  - Hiatus hernia [Unknown]
  - Vomiting [Unknown]
